FAERS Safety Report 16203330 (Version 1)
Quarter: 2019Q2

REPORT INFORMATION
  Report Type: Spontaneous
  Country: US (occurrence: US)
  Receive Date: 20190416
  Receipt Date: 20190416
  Transmission Date: 20190711
  Serious: No
  Sender: FDA-Public Use
  Company Number: US-AMNEAL PHARMACEUTICALS-2018AMN00780

PATIENT
  Sex: Male

DRUGS (4)
  1. AZATHIOPRINE. [Suspect]
     Active Substance: AZATHIOPRINE
     Indication: CROHN^S DISEASE
     Dosage: UNK
     Route: 065
  2. REMICADE [Concomitant]
     Active Substance: INFLIXIMAB
     Indication: INFLAMMATORY BOWEL DISEASE
  3. STELARA [Concomitant]
     Active Substance: USTEKINUMAB
     Indication: INFLAMMATORY BOWEL DISEASE
     Dosage: UNK
  4. PREDNISONE. [Concomitant]
     Active Substance: PREDNISONE

REACTIONS (2)
  - Treatment failure [Unknown]
  - Drug ineffective for unapproved indication [Unknown]
